FAERS Safety Report 24408338 (Version 1)
Quarter: 2024Q4

REPORT INFORMATION
  Report Type: Spontaneous
  Country: GB (occurrence: GB)
  Receive Date: 20241007
  Receipt Date: 20241007
  Transmission Date: 20250115
  Serious: Yes (Hospitalization, Other)
  Sender: JAZZ
  Company Number: GB-JAZZ PHARMACEUTICALS-2024-GB-016774

PATIENT
  Age: 63 Year
  Sex: Male

DRUGS (1)
  1. VYXEOS [Suspect]
     Active Substance: CYTARABINE\DAUNORUBICIN
     Indication: Product used for unknown indication
     Dosage: UNK

REACTIONS (5)
  - Respiratory failure [Unknown]
  - Febrile neutropenia [Unknown]
  - Acute kidney injury [Recovered/Resolved]
  - Fungal infection [Unknown]
  - Human metapneumovirus test positive [Unknown]
